FAERS Safety Report 8767952 (Version 1)
Quarter: 2012Q4

REPORT INFORMATION
  Report Type: 
  Country: JP (occurrence: JP)
  Receive Date: 20120830
  Receipt Date: 20120830
  Transmission Date: 20130627
  Serious: Yes (Death, Hospitalization)
  Sender: FDA-Public Use
  Company Number: JP-ELI_LILLY_AND_COMPANY-JP201205000384

PATIENT
  Sex: Female

DRUGS (2)
  1. FORTEO [Suspect]
     Dosage: UNK
     Route: 058
     Dates: end: 20120404
  2. FORTEO [Suspect]
     Dosage: UNK
     Route: 058
     Dates: start: 201205

REACTIONS (2)
  - Death [Fatal]
  - Pneumonia [Unknown]
